FAERS Safety Report 9213817 (Version 2)
Quarter: 2016Q1

REPORT INFORMATION
  Report Type: Report from Study
  Country: US (occurrence: US)
  Receive Date: 20130405
  Receipt Date: 20160201
  Transmission Date: 20160526
  Serious: Yes (Other)
  Sender: FDA-Public Use
  Company Number: US-SANOFI-AVENTIS-2013SA035126

PATIENT
  Sex: Female

DRUGS (2)
  1. LANTUS SOLOSTAR [Suspect]
     Active Substance: INSULIN GLARGINE
     Indication: BLOOD GLUCOSE INCREASED
     Route: 058
  2. SOLOSTAR [Concomitant]
     Active Substance: DEVICE
     Indication: BLOOD GLUCOSE INCREASED

REACTIONS (3)
  - Visual impairment [Unknown]
  - Blindness [Unknown]
  - Eye disorder [Unknown]
